FAERS Safety Report 25257120 (Version 1)
Quarter: 2025Q2

REPORT INFORMATION
  Report Type: Spontaneous
  Country: US (occurrence: US)
  Receive Date: 20250430
  Receipt Date: 20250430
  Transmission Date: 20250716
  Serious: Yes (Other)
  Sender: BRISTOL-MYERS SQUIBB COMPANY
  Company Number: US-BRISTOL-MYERS SQUIBB COMPANY-2025-060085

PATIENT
  Age: 57 Year
  Sex: Male

DRUGS (4)
  1. IPILIMUMAB [Suspect]
     Active Substance: IPILIMUMAB
     Indication: Renal cell carcinoma
     Dates: start: 202208, end: 202210
  2. NIVOLUMAB [Suspect]
     Active Substance: NIVOLUMAB
     Indication: Renal cell carcinoma
     Dates: start: 202208, end: 202210
  3. NIVOLUMAB [Suspect]
     Active Substance: NIVOLUMAB
  4. CABOZANTINIB [Concomitant]
     Active Substance: CABOZANTINIB
     Indication: Renal cell carcinoma
     Dates: start: 202209

REACTIONS (2)
  - Immune-mediated cholangitis [Recovering/Resolving]
  - Immune-mediated hepatitis [Recovering/Resolving]

NARRATIVE: CASE EVENT DATE: 20221101
